FAERS Safety Report 14638415 (Version 3)
Quarter: 2018Q2

REPORT INFORMATION
  Report Type: Spontaneous
  Country: NO (occurrence: NO)
  Receive Date: 20180314
  Receipt Date: 20180426
  Transmission Date: 20180711
  Serious: No
  Sender: FDA-Public Use
  Company Number: NL-ALLERGAN-1809595US

PATIENT
  Age: 67 Year
  Sex: Female

DRUGS (2)
  1. TIMOSAN [Concomitant]
     Active Substance: TIMOLOL MALEATE
     Dosage: UNK, BID
     Route: 047
  2. OZURDEX [Suspect]
     Active Substance: DEXAMETHASONE
     Indication: DIABETIC RETINAL OEDEMA
     Dosage: 0.7 MG, SINGLE
     Route: 031
     Dates: start: 20180103, end: 20180103

REACTIONS (2)
  - Blindness transient [Recovering/Resolving]
  - Eye haemorrhage [Recovered/Resolved]

NARRATIVE: CASE EVENT DATE: 20180103
